FAERS Safety Report 19632802 (Version 1)
Quarter: 2021Q3

REPORT INFORMATION
  Report Type: Spontaneous
  Country: FR (occurrence: FR)
  Receive Date: 20210730
  Receipt Date: 20210730
  Transmission Date: 20211014
  Serious: Yes (Hospitalization)
  Sender: FDA-Public Use
  Company Number: FR-ABBVIE-21K-056-4005576-00

PATIENT
  Age: 79 Year
  Sex: Male

DRUGS (2)
  1. VENETOCLAX. [Suspect]
     Active Substance: VENETOCLAX
     Indication: PULMONARY ARTERIAL HYPERTENSION
     Dosage: 14 DAYS CYCLE OUT OF 28
     Route: 048
     Dates: start: 20200917, end: 20210305
  2. VIDAZA [Suspect]
     Active Substance: AZACITIDINE
     Indication: PULMONARY ARTERIAL HYPERTENSION
     Dosage: FOR 7 DAYS OUT OF 35 DAYS
     Route: 058
     Dates: start: 20200820, end: 20210305

REACTIONS (1)
  - Bone marrow failure [Not Recovered/Not Resolved]

NARRATIVE: CASE EVENT DATE: 20210326
